FAERS Safety Report 12276703 (Version 1)
Quarter: 2016Q2

REPORT INFORMATION
  Report Type: Spontaneous
  Country: US (occurrence: US)
  Receive Date: 20160418
  Receipt Date: 20160418
  Transmission Date: 20160815
  Serious: No
  Sender: FDA-Public Use
  Company Number: US-PFIZER INC-2016171809

PATIENT
  Age: 54 Year
  Sex: Female
  Weight: 83.46 kg

DRUGS (4)
  1. EFFEXOR XR [Suspect]
     Active Substance: VENLAFAXINE HYDROCHLORIDE
     Indication: BIPOLAR DISORDER
     Dosage: 300 MG, 1X/DAY (EVERY MORNING)
     Route: 048
  2. NITRO [Concomitant]
     Active Substance: NITROGLYCERIN
     Indication: CHEST PAIN
     Dosage: 4MG, AS NEEDED
     Route: 048
  3. XANAX [Suspect]
     Active Substance: ALPRAZOLAM
     Indication: ANXIETY
     Dosage: 1MG, THREE TAKEN A DAY, SOMETIMES ONLY 2 A DAY
     Route: 048
  4. ELAVIL [Concomitant]
     Active Substance: AMITRIPTYLINE HYDROCHLORIDE
     Indication: SLEEP DISORDER
     Dosage: 100 MG, 1X/DAY (50MG, TWO AT NIGHT)
     Route: 048

REACTIONS (4)
  - Psychomotor hyperactivity [Unknown]
  - Product use issue [Unknown]
  - Overdose [Unknown]
  - Feeling abnormal [Unknown]
